FAERS Safety Report 7550491-2 (Version None)
Quarter: 2011Q2

REPORT INFORMATION
  Report Type: 
  Country: None (occurrence: None)
  Receive Date: 20110615
  Receipt Date: 20110117
  Transmission Date: 20111010
  Serious: Yes (Death)
  Sender: FDA-Public Use
  Company Number: DE-ACTELION-A-US2011-50282

PATIENT
  Age: 72 Year
  Sex: Male

DRUGS (1)
  1. VENTAVIS [Suspect]
     Indication: PRODUCT USED FOR UNKNOWN INDICATION
     Dosage: 5 UG, Q4HR
     Route: 055
     Dates: start: 20100730

REACTIONS (2)
  - DEATH [None]
  - OEDEMA PERIPHERAL [None]
